FAERS Safety Report 5374717-9 (Version None)
Quarter: 2007Q2

REPORT INFORMATION
  Report Type: 
  Country: None (occurrence: None)
  Receive Date: 20070621
  Receipt Date: 20070523
  Transmission Date: 20071010
  Serious: Yes (Other)
  Sender: FDA-Public Use
  Company Number: 13790555

PATIENT

DRUGS (1)
  1. EMSAM [Suspect]
     Dosage: 6 MILLIGRAM, TD
     Route: 062

REACTIONS (1)
  - BLOOD PRESSURE DIASTOLIC DECREASED [None]
